FAERS Safety Report 5146268-8 (Version None)
Quarter: 2006Q4

REPORT INFORMATION
  Report Type: 
  Country: None (occurrence: None)
  Receive Date: 20061108
  Receipt Date: 20061030
  Transmission Date: 20070319
  Serious: Yes (Other)
  Sender: FDA-Public Use
  Company Number: US-ELI_LILLY_AND_COMPANY-US200610005448

PATIENT
  Sex: Female

DRUGS (4)
  1. HUMULIN R [Suspect]
     Indication: DIABETES MELLITUS
     Dosage: UNK, UNK
     Dates: start: 19930101
  2. HUMULIN U [Suspect]
     Indication: DIABETES MELLITUS
     Dates: start: 19930101
  3. LANTUS [Concomitant]
     Indication: DIABETES MELLITUS
     Dosage: 50 U, EACH MORNING
  4. LANTUS [Concomitant]
     Dosage: 15 U, EACH EVENING

REACTIONS (4)
  - BLOOD GLUCOSE INCREASED [None]
  - EYE HAEMORRHAGE [None]
  - MACULAR OEDEMA [None]
  - VISUAL ACUITY REDUCED [None]
